FAERS Safety Report 7622577-5 (Version None)
Quarter: 2011Q3

REPORT INFORMATION
  Report Type: 
  Country: None (occurrence: None)
  Receive Date: 20110719
  Receipt Date: 20110719
  Transmission Date: 20111222
  Serious: Yes (Life-Threatening, Hospitalization)
  Sender: FDA-Public Use
  Company Number: None

PATIENT
  Age: 70 Year
  Sex: Male
  Weight: 79.3795 kg

DRUGS (1)
  1. CUBICIN [Suspect]
     Indication: OSTEOMYELITIS
     Dosage: DONE IN THE HOSPITAL/PT UNAWA QD IV
     Route: 042
     Dates: start: 20110501, end: 20110523

REACTIONS (5)
  - RHONCHI [None]
  - RESPIRATORY DISTRESS [None]
  - RALES [None]
  - EOSINOPHILIC PNEUMONIA [None]
  - COUGH [None]
